FAERS Safety Report 22384306 (Version 1)
Quarter: 2023Q2

REPORT INFORMATION
  Report Type: Spontaneous
  Country: CN (occurrence: CN)
  Receive Date: 20230530
  Receipt Date: 20230530
  Transmission Date: 20230721
  Serious: Yes (Other)
  Sender: FDA-Public Use
  Company Number: None

PATIENT
  Age: 23 Year
  Sex: Male
  Weight: 56 kg

DRUGS (6)
  1. IFOSFAMIDE [Suspect]
     Active Substance: IFOSFAMIDE
     Indication: Hodgkin^s disease
     Dosage: 3 G, QD (DILUTED WITH 0.9% NS 500ML)
     Route: 041
     Dates: start: 20230403, end: 20230406
  2. SODIUM CHLORIDE [Suspect]
     Active Substance: SODIUM CHLORIDE
     Indication: Medication dilution
     Dosage: STRENGTH: 0.9%, 500 ML, QD (USED TO DILUTE 3 G OF IFOSFAMIDE)
     Route: 041
     Dates: start: 20230403, end: 20230406
  3. SODIUM CHLORIDE [Suspect]
     Active Substance: SODIUM CHLORIDE
     Dosage: STRENGTH: 0.9%, 40 ML, QD, ROUTE: INTRA-PUMP INJECTION (USED TO DILUTE 20 MG VINORELBINE TARTRATE)
     Route: 050
     Dates: start: 20230403, end: 20230406
  4. SODIUM CHLORIDE [Suspect]
     Active Substance: SODIUM CHLORIDE
     Dosage: STRENGTH: 0.9%, 100 ML, Q3D, ROUTE: INTRA-PUMP INJECTION (USED TO DILUTE 1 G OF GEMCITABINE HYDROCHL
     Route: 050
     Dates: start: 20230403, end: 20230407
  5. VINORELBINE TARTRATE [Suspect]
     Active Substance: VINORELBINE TARTRATE
     Indication: Hodgkin^s disease
     Dosage: 20 MG, QD (DILUTED WITH 0.9% NS 40ML), ROUTE: INTRA-PUMP INJECTION
     Route: 050
     Dates: start: 20230403, end: 20230406
  6. GEMCITABINE HYDROCHLORIDE [Suspect]
     Active Substance: GEMCITABINE HYDROCHLORIDE
     Indication: Hodgkin^s disease
     Dosage: 1 G, Q3D (DILUTED WITH 0.9% NS 100ML), ROUTE: INTRA-PUMP INJECTION
     Route: 050
     Dates: start: 20230403, end: 20230407

REACTIONS (2)
  - Myelosuppression [Recovering/Resolving]
  - Platelet count decreased [Recovering/Resolving]

NARRATIVE: CASE EVENT DATE: 20230413
